FAERS Safety Report 12460018 (Version 2)
Quarter: 2016Q3

REPORT INFORMATION
  Report Type: Spontaneous
  Country: US (occurrence: US)
  Receive Date: 20160613
  Receipt Date: 20160704
  Transmission Date: 20161109
  Serious: Yes (Life-Threatening, Hospitalization)
  Sender: FDA-Public Use
  Company Number: US-PFIZER INC-2016275242

PATIENT
  Age: 78 Year
  Sex: Female
  Weight: 77.98 kg

DRUGS (15)
  1. METOPROLOL SUCCINATE. [Concomitant]
     Active Substance: METOPROLOL SUCCINATE
     Dosage: 50 MG, 1X/DAY (50 MG XR24H-TAB)
     Route: 048
  2. CALCIUM 600 [Concomitant]
     Dosage: 1 DF, DAILY (600 TABS)
  3. LEVOTHYROXINE SODIUM. [Concomitant]
     Active Substance: LEVOTHYROXINE SODIUM
     Dosage: 125 UG, DAILY
     Route: 048
  4. SUTENT [Suspect]
     Active Substance: SUNITINIB MALATE
     Dosage: 50 MG, CYCLIC (TAKE ONE TABLET DAILY FOR 4-WEEKS THEN 2 WEEKS OFF)
  5. FOLBEE [Concomitant]
     Active Substance: CYANOCOBALAMIN\FOLIC ACID\PYRIDOXINE HYDROCHLORIDE
     Dosage: 1 DF, DAILY (FOLIC ACID: 2.5 MG; PYRIDOXINE HYDROCHLORIDE: 25MG; CYANOCOBALAMIN: 1MG)
  6. PROCHLORPERAZINE MALEATE. [Concomitant]
     Active Substance: PROCHLORPERAZINE MALEATE
     Dosage: 10 MG, 4X/DAY (EVERY 6 HOURS)
  7. ASA [Concomitant]
     Active Substance: ASPIRIN
     Dosage: UNK
  8. SYNTHROID [Concomitant]
     Active Substance: LEVOTHYROXINE SODIUM
     Dosage: UNK
  9. LOSARTAN POTASSIUM. [Concomitant]
     Active Substance: LOSARTAN POTASSIUM
     Dosage: 50 MG, 1X/DAY
  10. ERGOCALCIFEROL. [Concomitant]
     Active Substance: ERGOCALCIFEROL
     Dosage: 50000 IU, WEEKLY
     Route: 048
  11. ASPIRIN. [Concomitant]
     Active Substance: ASPIRIN
     Dosage: 81 MG, 1X/DAY
  12. ONDANSETRON HCL [Concomitant]
     Active Substance: ONDANSETRON HYDROCHLORIDE
     Dosage: 8 MG, AS NEEDED
  13. CLONAZEPAM. [Concomitant]
     Active Substance: CLONAZEPAM
     Indication: ANXIETY
     Dosage: 0.5 MG, AS NEEDED (Q6HRS PRN ANXIETY)
     Route: 048
  14. SUTENT [Suspect]
     Active Substance: SUNITINIB MALATE
     Indication: RENAL CELL CARCINOMA
     Dosage: 50 MG, CYCLIC (D1-14 OF 21D CYCLE)
     Route: 048
     Dates: start: 201507, end: 20160330
  15. ACETAMINOPHEN AND CODEINE [Concomitant]
     Active Substance: ACETAMINOPHEN\CODEINE PHOSPHATE
     Indication: PAIN
     Dosage: 1 DF, AS NEEDED (CODEINE: 30MG; PARACETAMOL: 300MG) (Q6HRS PRN PAIN)
     Route: 048

REACTIONS (10)
  - Transient ischaemic attack [Recovered/Resolved]
  - Musculoskeletal stiffness [Unknown]
  - Fall [Recovering/Resolving]
  - Anaemia [Unknown]
  - Fatigue [Unknown]
  - Road traffic accident [Unknown]
  - Delirium [Recovered/Resolved]
  - Dysphoria [Unknown]
  - Asthenia [Unknown]
  - Loss of consciousness [Recovered/Resolved]
